FAERS Safety Report 10997187 (Version 1)
Quarter: 2015Q2

REPORT INFORMATION
  Report Type: Spontaneous
  Country: FR (occurrence: FR)
  Receive Date: 20150408
  Receipt Date: 20150408
  Transmission Date: 20150821
  Serious: Yes (Hospitalization)
  Sender: FDA-Public Use
  Company Number: FR-MYLANLABS-2015M1011093

PATIENT

DRUGS (2)
  1. CLONIDINE. [Interacting]
     Active Substance: CLONIDINE
     Dosage: 0.23 MG (10 TIMES THE DOSE RECOMMENDED )
     Route: 065
  2. BETAXOLOL MYLAN 20 MG, COMPRIM? PELLICUL? S?CABLE [Suspect]
     Active Substance: BETAXOLOL HYDROCHLORIDE
     Dosage: 6.2 MG (0.25 MG/KG)
     Route: 048

REACTIONS (9)
  - Toxicity to various agents [Recovering/Resolving]
  - Bundle branch block right [None]
  - Drug interaction [Recovered/Resolved]
  - Miosis [Unknown]
  - Somnolence [Recovered/Resolved]
  - Bradycardia [Recovered/Resolved]
  - Electrocardiogram ST segment elevation [None]
  - Hypotension [Recovered/Resolved]
  - Accidental overdose [Recovering/Resolving]
